FAERS Safety Report 8492670-6 (Version None)
Quarter: 2012Q3

REPORT INFORMATION
  Report Type: 
  Country: None (occurrence: None)
  Receive Date: 20120706
  Receipt Date: 20120703
  Transmission Date: 20120928
  Serious: Yes (Death)
  Sender: FDA-Public Use
  Company Number: BR-ABBOTT-12P-020-0952750-00

PATIENT

DRUGS (4)
  1. UNSPECIFIED ORAL CONTRACEPTIVE [Interacting]
     Indication: PRODUCT USED FOR UNKNOWN INDICATION
  2. DEPAKOTE [Suspect]
     Indication: PRODUCT USED FOR UNKNOWN INDICATION
  3. NICOTINE [Interacting]
     Indication: PRODUCT USED FOR UNKNOWN INDICATION
  4. TOPIRAMATE [Interacting]
     Indication: PRODUCT USED FOR UNKNOWN INDICATION

REACTIONS (2)
  - DRUG INTERACTION [None]
  - DEATH [None]
